FAERS Safety Report 17287198 (Version 1)
Quarter: 2020Q1

REPORT INFORMATION
  Report Type: Report from Study
  Country: None (occurrence: GR)
  Receive Date: 20200120
  Receipt Date: 20200120
  Transmission Date: 20200409
  Serious: Yes (Other)
  Sender: FDA-Public Use
  Company Number: GR-ABBVIE-20K-066-3235297-00

PATIENT
  Sex: Male
  Weight: 78 kg

DRUGS (1)
  1. DUODOPA [Suspect]
     Active Substance: CARBIDOPA\LEVODOPA
     Indication: PARKINSON^S DISEASE
     Dosage: MORNING DOSE: 7.1ML; CONTINUOUS RATE: 4.7ML; EXTRA DOSE: 1.7ML
     Route: 050
     Dates: start: 20181126

REACTIONS (2)
  - Metastases to bone [Not Recovered/Not Resolved]
  - Bedridden [Not Recovered/Not Resolved]
